FAERS Safety Report 12886691 (Version 1)
Quarter: 2016Q4

REPORT INFORMATION
  Report Type: Spontaneous
  Country: US (occurrence: US)
  Receive Date: 20161026
  Receipt Date: 20161026
  Transmission Date: 20170207
  Serious: Yes (Hospitalization)
  Sender: FDA-Public Use
  Company Number: US-GE HEALTHCARE MEDICAL DIAGNOSTICS-OPTN-PR-1610S-0003

PATIENT
  Age: 35 Year
  Sex: Male
  Weight: 118.4 kg

DRUGS (13)
  1. OPTISON [Suspect]
     Active Substance: ALBUMIN HUMAN
     Indication: BIOPSY KIDNEY
     Dosage: DOSE NOT REPORTED
     Route: 042
     Dates: start: 20161011, end: 20161011
  2. OPTISON [Suspect]
     Active Substance: ALBUMIN HUMAN
     Indication: THERAPEUTIC PROCEDURE
  3. TACROLIMUS. [Concomitant]
     Active Substance: TACROLIMUS
  4. ISONIAZID. [Concomitant]
     Active Substance: ISONIAZID
  5. VALCYTE [Concomitant]
     Active Substance: VALGANCICLOVIR HYDROCHLORIDE
  6. BACTRIM [Concomitant]
     Active Substance: SULFAMETHOXAZOLE\TRIMETHOPRIM
  7. VITAMIN B6 [Concomitant]
     Active Substance: PYRIDOXINE HYDROCHLORIDE
  8. MAGNESIUM OXIDE. [Concomitant]
     Active Substance: MAGNESIUM OXIDE
  9. ASPIRIN. [Concomitant]
     Active Substance: ASPIRIN
  10. PREDNISONE. [Concomitant]
     Active Substance: PREDNISONE
  11. CELLCEPT [Concomitant]
     Active Substance: MYCOPHENOLATE MOFETIL\MYCOPHENOLATE MOFETIL HYDROCHLORIDE
  12. CALCITRIOL. [Concomitant]
     Active Substance: CALCITRIOL
  13. FLUCONAZOLE. [Concomitant]
     Active Substance: FLUCONAZOLE

REACTIONS (2)
  - Complications of transplant surgery [Recovered/Resolved]
  - Blood creatinine increased [Recovered/Resolved]

NARRATIVE: CASE EVENT DATE: 20161014
